FAERS Safety Report 9762373 (Version 1)
Quarter: 2013Q4

REPORT INFORMATION
  Report Type: Spontaneous
  Country: US (occurrence: US)
  Receive Date: 20131216
  Receipt Date: 20131216
  Transmission Date: 20140711
  Serious: No
  Sender: FDA-Public Use
  Company Number: US-BIOGENIDEC-2013BI106715

PATIENT
  Age: 43 Year
  Sex: Male
  Weight: 94 kg

DRUGS (5)
  1. TECFIDERA [Suspect]
     Indication: PRODUCT USED FOR UNKNOWN INDICATION
     Route: 048
  2. TECFIDERA [Suspect]
     Indication: PRODUCT USED FOR UNKNOWN INDICATION
     Route: 048
  3. CLARITIN [Concomitant]
  4. VITAMIN D3 [Concomitant]
  5. VITAMIN C [Concomitant]

REACTIONS (1)
  - Muscle spasms [Unknown]
